FAERS Safety Report 15205699 (Version 1)
Quarter: 2018Q3

REPORT INFORMATION
  Report Type: Spontaneous
  Country: CA (occurrence: CA)
  Receive Date: 20180727
  Receipt Date: 20180727
  Transmission Date: 20181010
  Serious: Yes (Hospitalization, Other)
  Sender: FDA-Public Use
  Company Number: CA-ALEXION PHARMACEUTICALS INC-A201806432

PATIENT
  Sex: Female

DRUGS (2)
  1. SOLIRIS [Suspect]
     Active Substance: ECULIZUMAB
     Indication: C3 GLOMERULOPATHY
     Dosage: UNK
     Route: 065
  2. SOLIRIS [Suspect]
     Active Substance: ECULIZUMAB
     Indication: OFF LABEL USE

REACTIONS (11)
  - Abdominal wall wound [Unknown]
  - Abdominal distension [Unknown]
  - Nausea [Recovering/Resolving]
  - Malaise [Unknown]
  - Pain [Unknown]
  - Vomiting [Recovering/Resolving]
  - Asthenia [Recovering/Resolving]
  - Oxygen saturation decreased [Unknown]
  - Renal impairment [Recovering/Resolving]
  - Off label use [Unknown]
  - Pleural effusion [Unknown]

NARRATIVE: CASE EVENT DATE: 2018
